FAERS Safety Report 8371462-2 (Version None)
Quarter: 2012Q2

REPORT INFORMATION
  Report Type: 
  Country: None (occurrence: None)
  Receive Date: 20120518
  Receipt Date: 20120511
  Transmission Date: 20120825
  Serious: Yes (Other)
  Sender: FDA-Public Use
  Company Number: US-US-EMD SERONO, INC.-7132733

PATIENT
  Sex: Female
  Weight: 49 kg

DRUGS (2)
  1. SAIZEN [Suspect]
     Indication: TURNER'S SYNDROME
     Route: 058
  2. MENOSTAR [Concomitant]
     Indication: PRODUCT USED FOR UNKNOWN INDICATION
     Dosage: OR HALF PATCH DAILY

REACTIONS (1)
  - ANOMALOUS PULMONARY VENOUS CONNECTION [None]
